FAERS Safety Report 7438655-X (Version None)
Quarter: 2011Q2

REPORT INFORMATION
  Report Type: 
  Country: None (occurrence: None)
  Receive Date: 20110426
  Receipt Date: 20110419
  Transmission Date: 20111010
  Serious: Yes (Hospitalization, Other)
  Sender: FDA-Public Use
  Company Number: GB-BAUSCH-2011BL002600

PATIENT
  Age: 48 Year
  Sex: Male

DRUGS (7)
  1. CYCLOSPORINE [Suspect]
     Indication: IMMUNOSUPPRESSANT DRUG THERAPY
  2. MYCOPHENOLATE MOFETIL [Suspect]
  3. PREDNISOLONE [Suspect]
     Indication: IMMUNOSUPPRESSANT DRUG THERAPY
  4. ANTITHYMOCYTE IMMUNOGLOBULIN [Suspect]
     Indication: IMMUNOSUPPRESSANT DRUG THERAPY
  5. PREDNISOLONE [Suspect]
  6. PREDNISOLONE [Suspect]
  7. METHYLPREDNISOLONE [Suspect]
     Indication: IMMUNOSUPPRESSANT DRUG THERAPY

REACTIONS (2)
  - CYTOMEGALOVIRUS INFECTION [None]
  - AORTIC DISSECTION [None]
